FAERS Safety Report 8495243-4 (Version None)
Quarter: 2012Q3

REPORT INFORMATION
  Report Type: 
  Country: None (occurrence: None)
  Receive Date: 20120709
  Receipt Date: 20120629
  Transmission Date: 20120928
  Serious: Yes (Death, Other)
  Sender: FDA-Public Use
  Company Number: PH-MERCK-1207USA00154

PATIENT

DRUGS (1)
  1. JANUVIA [Suspect]
     Dosage: 25 MG, QD
     Route: 048

REACTIONS (1)
  - CARDIAC ARREST [None]
